FAERS Safety Report 8830129 (Version 1)
Quarter: 2012Q4

REPORT INFORMATION
  Report Type: Spontaneous
  Country: IT (occurrence: None)
  Receive Date: 20121004
  Receipt Date: 20121004
  Transmission Date: 20130627
  Serious: Yes (Other)
  Sender: FDA-Public Use
  Company Number: 2012AP003141

PATIENT
  Age: 52 Year
  Sex: Male

DRUGS (4)
  1. LEVOFLOXACIN [Suspect]
     Indication: ANTIBACTERIAL PROPHYLAXIS
     Route: 048
     Dates: start: 20120820, end: 20120823
  2. EUTIROX (LEVOTHYROXINE SODIUM) [Concomitant]
  3. GLUCOPHAGE (METFORMIN HYDROCHLORIDE) [Concomitant]
  4. ENAPREN (ENALAPRIL MALEATE) [Concomitant]

REACTIONS (2)
  - Eyelid oedema [None]
  - Lip oedema [None]
